FAERS Safety Report 4443907-1 (Version None)
Quarter: 2004Q3

REPORT INFORMATION
  Report Type: 
  Country: None (occurrence: None)
  Receive Date: 20040729
  Receipt Date: 20030617
  Transmission Date: 20050211
  Serious: Yes (Other)
  Sender: FDA-Public Use
  Company Number: US-JNJFOC-20030602269

PATIENT
  Age: 5 Year
  Sex: Male

DRUGS (4)
  1. RISPERDAL [Suspect]
     Indication: MOOD SWINGS
     Dosage: SEE IMAGE
     Dates: start: 20030201, end: 20030201
  2. RISPERDAL [Suspect]
     Indication: MOOD SWINGS
     Dosage: SEE IMAGE
     Dates: start: 20030501, end: 20030501
  3. DEPAKOTE [Concomitant]
  4. STRATTERA (ALL OTHER THERAPEUTIC PRODUCTS) [Concomitant]

REACTIONS (2)
  - PLATELET COUNT DECREASED [None]
  - WHITE BLOOD CELL COUNT DECREASED [None]
